FAERS Safety Report 4420070-4 (Version None)
Quarter: 2004Q3

REPORT INFORMATION
  Report Type: 
  Country: None (occurrence: None)
  Receive Date: 20040805
  Receipt Date: 20040805
  Transmission Date: 20050211
  Serious: No
  Sender: FDA-Public Use
  Company Number: None

PATIENT
  Age: 60 Year
  Sex: Male
  Weight: 55.7924 kg

DRUGS (1)
  1. TAXOL [Suspect]
     Dosage: MODEL # 38970-1627
     Dates: start: 20040720, end: 20040720

REACTIONS (1)
  - DEVICE FAILURE [None]
